FAERS Safety Report 8242094-1 (Version None)
Quarter: 2012Q1

REPORT INFORMATION
  Report Type: 
  Country: None (occurrence: None)
  Receive Date: 20120329
  Receipt Date: 20120320
  Transmission Date: 20120608
  Serious: Yes (Other)
  Sender: FDA-Public Use
  Company Number: US-AMGEN-USASP2012018003

PATIENT
  Age: 62 Year
  Sex: Female

DRUGS (1)
  1. ENBREL [Suspect]
     Indication: RHEUMATOID ARTHRITIS
     Dosage: 50 MG, QWK
     Dates: start: 20111007, end: 20111101

REACTIONS (8)
  - DYSPNOEA [None]
  - CHEST PAIN [None]
  - ANXIETY [None]
  - VISUAL FIELD DEFECT [None]
  - ENDOMETRIAL HYPERPLASIA [None]
  - CLUSTER HEADACHE [None]
  - PHOTOPSIA [None]
  - CERVIX DISORDER [None]
